FAERS Safety Report 21034907 (Version 4)
Quarter: 2025Q4

REPORT INFORMATION
  Report Type: Spontaneous
  Country: US (occurrence: US)
  Receive Date: 20220701
  Receipt Date: 20251024
  Transmission Date: 20260117
  Serious: Yes (Hospitalization, Other)
  Sender: CATALYST PHARMA
  Company Number: US-CATALYST PHARMACEUTICALS, INC-2022CAT00448

PATIENT
  Sex: Male
  Weight: 64.4 kg

DRUGS (38)
  1. FIRDAPSE [Suspect]
     Active Substance: AMIFAMPRIDINE PHOSPHATE
     Indication: Myasthenic syndrome
     Dosage: HALF A TABLET 3 TIMES DAILY FOR 4 DAYS, THEN INCREASE BY HALF A TABLET EVERY 3 DAYS UNTIL A MAX DOSA
     Route: 048
     Dates: start: 20190419
  2. FIRDAPSE [Suspect]
     Active Substance: AMIFAMPRIDINE PHOSPHATE
     Dosage: 1 TABLET 5 TIMES PER DAY  AT 7AM, 11AM, 3PM, 7PM, 11PM
     Route: 048
  3. BELSOMRA [Concomitant]
     Active Substance: SUVOREXANT
     Indication: Insomnia
     Dosage: 20 MG, AS NEEDED
     Route: 065
  4. NORTHERA [Concomitant]
     Active Substance: DROXIDOPA
     Indication: Product used for unknown indication
     Dosage: 200 MG, 3X/DAY
     Route: 048
  5. NORTHERA [Concomitant]
     Active Substance: DROXIDOPA
     Dosage: 100 MG, 3X/DAY
     Route: 048
  6. FERRIC POLYSACCHARIDE COMPLEX [Concomitant]
     Active Substance: FERRIC POLYSACCHARIDE COMPLEX
     Indication: Product used for unknown indication
     Dosage: 150 MG, 1X/DAY
     Route: 065
  7. FERRIC POLYSACCHARIDE COMPLEX [Concomitant]
     Active Substance: FERRIC POLYSACCHARIDE COMPLEX
     Dosage: 150 MG, 2X/DAY
     Route: 065
  8. FLUDROCORTISONE [Concomitant]
     Active Substance: FLUDROCORTISONE
     Indication: Orthostatic hypotension
     Dosage: 0.1 MG, 1X/DAY
     Route: 048
  9. FLUDROCORTISONE [Concomitant]
     Active Substance: FLUDROCORTISONE
     Dosage: 0.1 MG, 1X/DAY ON MONDAY, WEDNESDAY, AND FRIDAY
     Route: 048
  10. FLUDROCORTISONE [Concomitant]
     Active Substance: FLUDROCORTISONE
     Dosage: 0.1 MG, 1X/DAY
     Route: 048
  11. GAMMAGARD [Concomitant]
     Active Substance: HUMAN IMMUNOGLOBULIN G
     Indication: Product used for unknown indication
     Dosage: 24.48 G, EVERY 2 WEEKS FOR A TOTAL OF 29 INFUSIONS FOR 6 MONTHS
     Route: 042
  12. GAMMAGARD [Concomitant]
     Active Substance: HUMAN IMMUNOGLOBULIN G
     Dosage: 30 G PER 300ML EVERY 2 WEEKS
     Route: 065
  13. HUMALOG [Concomitant]
     Active Substance: INSULIN LISPRO
     Indication: Diabetes mellitus
     Dosage: UP TO 80 UNITS PER DAY IN PUMP, AS NEEDED
     Route: 065
  14. HUMALOG [Concomitant]
     Active Substance: INSULIN LISPRO
     Dosage: 10 UNITS AS NEEDED
     Route: 065
  15. LEVOTHYROXINE [Concomitant]
     Active Substance: LEVOTHYROXINE
     Indication: Autoimmune thyroiditis
     Dosage: 88 ?G, 1X/DAY
     Route: 048
  16. LOPERAMIDE [Concomitant]
     Active Substance: LOPERAMIDE
     Indication: Diarrhoea
     Dosage: 2 MG, 3X/DAY BEFORE MEALS
     Route: 048
  17. LOPERAMIDE [Concomitant]
     Active Substance: LOPERAMIDE
     Dosage: 4 MG THREE TIMES DAILY
     Route: 065
  18. MESTINON [Concomitant]
     Active Substance: PYRIDOSTIGMINE BROMIDE
     Indication: Myasthenic syndrome
     Dosage: 60 MG, 4X/DAY
     Route: 048
  19. MESTINON [Concomitant]
     Active Substance: PYRIDOSTIGMINE BROMIDE
     Dosage: 60 MG, 3X/DAY
     Route: 048
  20. ONDANSETRON [Concomitant]
     Active Substance: ONDANSETRON
     Indication: Nausea
     Dosage: 4 MG, AS NEEDED
     Route: 065
  21. OZEMPIC [Concomitant]
     Active Substance: SEMAGLUTIDE
     Indication: Diabetes mellitus
     Dosage: 0.5 MG, 1X/WEEK
     Route: 058
  22. OZEMPIC [Concomitant]
     Active Substance: SEMAGLUTIDE
     Dosage: 2 MG, 1X/WEEK
     Route: 065
  23. PANTOPRAZOLE [Concomitant]
     Active Substance: PANTOPRAZOLE
     Indication: Gastrooesophageal reflux disease
     Dosage: 40 MG, 1X/DAY
     Route: 048
  24. PROBIOTICS NOS [Concomitant]
     Active Substance: PROBIOTICS NOS
     Indication: Gastrointestinal disorder prophylaxis
     Dosage: 1 CAPSULE, 1X/DAY
     Route: 048
  25. ELECTROLYTES IV [Concomitant]
     Indication: Product used for unknown indication
     Dosage: 1 DOSAGE FORM, QD
     Route: 042
  26. VITAMIN A [Concomitant]
     Active Substance: VITAMIN A
     Indication: Hypovitaminosis
     Dosage: 4800 ?G, 1X/DAY
     Route: 065
  27. VITAMIN A [Concomitant]
     Active Substance: VITAMIN A
     Dosage: 4800 MG DAILY
     Route: 065
  28. VITAMIN D3 [Concomitant]
     Active Substance: CHOLECALCIFEROL
     Indication: Hypovitaminosis
     Dosage: 5000 IU, 1X/DAY
     Route: 048
  29. VITAMINS [Concomitant]
     Active Substance: VITAMINS
     Indication: Product used for unknown indication
     Dosage: 4800 IU
     Route: 048
  30. ELIQUIS [Concomitant]
     Active Substance: APIXABAN
     Indication: Product used for unknown indication
     Dosage: 2.5 MG, 2X/DAY
     Route: 065
  31. PLAQUENIL [Concomitant]
     Active Substance: HYDROXYCHLOROQUINE SULFATE
     Indication: Product used for unknown indication
     Dosage: 200 MG, 1X/DAY
     Route: 048
  32. LOVENOX [Concomitant]
     Active Substance: ENOXAPARIN SODIUM
     Indication: Thrombosis prophylaxis
     Dosage: 60 MG TWICE DAILY
     Route: 058
  33. HUMAN IMMUNOGLOBULIN G [Concomitant]
     Active Substance: HUMAN IMMUNOGLOBULIN G
     Indication: Product used for unknown indication
     Dosage: AS NEEDED EVERY OTHER WEEK
     Route: 042
  34. DROXIDOPA [Concomitant]
     Active Substance: DROXIDOPA
     Indication: Orthostatic hypotension
     Dosage: 100 MG THREE TIMES A DAY
     Route: 065
  35. DROXIDOPA [Concomitant]
     Active Substance: DROXIDOPA
     Dosage: 200 MG THREE TIMES A DAY
     Route: 065
  36. IRON [Concomitant]
     Active Substance: IRON
     Indication: Hypovitaminosis
     Dosage: 150 MG
     Route: 065
  37. METHOCARBAMOL [Concomitant]
     Active Substance: METHOCARBAMOL
     Indication: Pain
     Dosage: 1000 MG TWICE DAILY
     Route: 065
  38. WARFARIN [Concomitant]
     Active Substance: WARFARIN
     Indication: Thrombosis prophylaxis
     Dosage: 8 MG DAILY SIX DAYS A WEEK, 10 MG ON SATURDAYS
     Route: 065

REACTIONS (16)
  - Superior vena cava syndrome [Not Recovered/Not Resolved]
  - Complication associated with device [Recovering/Resolving]
  - Staphylococcal bacteraemia [Recovered/Resolved]
  - Subclavian vein occlusion [Unknown]
  - Surgery [Recovered/Resolved]
  - Superior vena cava syndrome [Unknown]
  - Coagulopathy [Unknown]
  - Sepsis [Unknown]
  - Localised oedema [Recovering/Resolving]
  - Face oedema [Unknown]
  - Swelling face [Recovering/Resolving]
  - Lethargy [Unknown]
  - Hepatic enzyme increased [Unknown]
  - Oedema peripheral [Unknown]
  - Product dose omission issue [Unknown]
  - Inappropriate schedule of product administration [Unknown]

NARRATIVE: CASE EVENT DATE: 20220101
